FAERS Safety Report 5394988-2 (Version None)
Quarter: 2007Q3

REPORT INFORMATION
  Report Type: 
  Country: None (occurrence: None)
  Receive Date: 20070724
  Receipt Date: 20070717
  Transmission Date: 20080115
  Serious: Yes (Hospitalization)
  Sender: FDA-Public Use
  Company Number: PHEH2007US10164

PATIENT
  Sex: Female

DRUGS (3)
  1. FORADIL [Suspect]
     Indication: EMPHYSEMA
     Dosage: UNK, UNK
     Dates: start: 20070701
  2. ALBUTEROL [Concomitant]
  3. SPIRIVA [Concomitant]

REACTIONS (1)
  - OXYGEN SATURATION DECREASED [None]
